FAERS Safety Report 7969859-5 (Version None)
Quarter: 2011Q4

REPORT INFORMATION
  Report Type: 
  Country: None (occurrence: None)
  Receive Date: 20111121
  Receipt Date: 20110802
  Transmission Date: 20120403
  Serious: No
  Sender: FDA-Public Use
  Company Number: 1000022631

PATIENT
  Age: 38 Year
  Sex: Female

DRUGS (5)
  1. VIIBRYD [Suspect]
     Indication: DEPRESSION
     Dosage: 10 MG (10 MG, 1 IN 1 D), ORAL, 20 MG (20 MG, 1 IN 1 D), ORAL, 40 MG (40 MG, 1 IN 1 D), ORAL
     Route: 048
     Dates: start: 20110726
  2. VIIBRYD [Suspect]
     Indication: DEPRESSION
     Dosage: 10 MG (10 MG, 1 IN 1 D), ORAL, 20 MG (20 MG, 1 IN 1 D), ORAL, 40 MG (40 MG, 1 IN 1 D), ORAL
     Route: 048
     Dates: start: 20110719, end: 20110725
  3. VIIBRYD [Suspect]
     Indication: DEPRESSION
     Dosage: 10 MG (10 MG, 1 IN 1 D), ORAL, 20 MG (20 MG, 1 IN 1 D), ORAL, 40 MG (40 MG, 1 IN 1 D), ORAL
     Route: 048
     Dates: start: 20110712, end: 20110718
  4. APIDRA (INSULIN GLULISINE) (INJECTION FOR INFUSION) (INSULIN GLULISINE [Concomitant]
  5. DIAMOX [Concomitant]
     Indication: BENIGN INTRACRANIAL HYPERTENSION

REACTIONS (12)
  - PANIC ATTACK [None]
  - DECREASED APPETITE [None]
  - MUSCULOSKELETAL STIFFNESS [None]
  - THINKING ABNORMAL [None]
  - VOMITING [None]
  - HALLUCINATION [None]
  - DISORIENTATION [None]
  - CSF PRESSURE INCREASED [None]
  - ILL-DEFINED DISORDER [None]
  - VISUAL ACUITY REDUCED [None]
  - NAUSEA [None]
  - SOMNOLENCE [None]
